FAERS Safety Report 9578353 (Version 1)
Quarter: 2013Q4

REPORT INFORMATION
  Report Type: Spontaneous
  Country: US (occurrence: US)
  Receive Date: 20131001
  Receipt Date: 20131001
  Transmission Date: 20140711
  Serious: No
  Sender: FDA-Public Use
  Company Number: US-AMGEN-USASP2013012771

PATIENT
  Age: 2 Year
  Sex: Female
  Weight: 10.43 kg

DRUGS (8)
  1. ENBREL [Suspect]
     Indication: JUVENILE IDIOPATHIC ARTHRITIS
     Dosage: 25 MG, QWK
     Route: 058
     Dates: start: 20130214
  2. ZYRTEC [Concomitant]
     Dosage: 10 MG, UNK
  3. CYPROHEPTADINE [Concomitant]
     Dosage: 4 MG, UNK
  4. PEDIASURE [Concomitant]
     Dosage: UNK
  5. EPIPEN [Concomitant]
     Dosage: 0.3 MG, UNK
  6. HYDROCORT                          /00028602/ [Concomitant]
     Dosage: 1 %, UNK
  7. MIRALAX                            /00754501/ [Concomitant]
     Dosage: 3350, NF
  8. SENNA                              /00142201/ [Concomitant]
     Dosage: UNK

REACTIONS (1)
  - Rhinorrhoea [Unknown]
